FAERS Safety Report 13785381 (Version 1)
Quarter: 2017Q3

REPORT INFORMATION
  Report Type: Spontaneous
  Country: US (occurrence: US)
  Receive Date: 20170724
  Receipt Date: 20170724
  Transmission Date: 20171127
  Serious: Yes (Other)
  Sender: FDA-Public Use
  Company Number: None

PATIENT
  Age: 2 Year
  Sex: Female
  Weight: 19.8 kg

DRUGS (2)
  1. RANITIDINE. [Concomitant]
     Active Substance: RANITIDINE
  2. CEFDINIR FOR ORAL SUSPENSION USP [Suspect]
     Active Substance: CEFDINIR
     Indication: SINUSITIS
     Dosage: ?          OTHER STRENGTH:MG/5ML;QUANTITY:6 ML;?
     Route: 048
     Dates: start: 20170719, end: 20170721

REACTIONS (7)
  - Rash [None]
  - Malaise [None]
  - Urticaria [None]
  - Pruritus [None]
  - Fungal infection [None]
  - Diarrhoea [None]
  - Skin irritation [None]

NARRATIVE: CASE EVENT DATE: 20170721
